FAERS Safety Report 10055036 (Version 1)
Quarter: 2014Q2

REPORT INFORMATION
  Report Type: Spontaneous
  Country: US (occurrence: US)
  Receive Date: 20140402
  Receipt Date: 20140402
  Transmission Date: 20141212
  Serious: Yes (Other)
  Sender: FDA-Public Use
  Company Number: US-AMGEN INC.-USASP2014022931

PATIENT
  Age: 54 Year
  Sex: Male

DRUGS (6)
  1. ENBREL [Suspect]
     Indication: RHEUMATOID ARTHRITIS
     Dosage: 50 MG, QWK
     Route: 058
  2. LEFLUNOMIDE [Concomitant]
     Dosage: 20 MG, QD
  3. NAPROXEN [Concomitant]
     Dosage: 500 MG, BID
  4. OMEPRAZOLE [Concomitant]
     Dosage: 20 MG, QD
  5. PREDNISONE [Concomitant]
     Dosage: 5 MG, QD
  6. TOFACITINIB [Concomitant]
     Dosage: 5 MG, BID
     Route: 048

REACTIONS (7)
  - Rheumatoid arthritis [Unknown]
  - Hernia repair [Unknown]
  - Drug ineffective [Unknown]
  - Musculoskeletal stiffness [Unknown]
  - Synovitis [Unknown]
  - Joint effusion [Unknown]
  - Activities of daily living impaired [Unknown]
